FAERS Safety Report 10004569 (Version 2)
Quarter: 2014Q1

REPORT INFORMATION
  Report Type: Report from Study
  Country: US (occurrence: US)
  Receive Date: 20140312
  Receipt Date: 20140312
  Transmission Date: 20141002
  Serious: Yes (Other)
  Sender: FDA-Public Use
  Company Number: PHEH2014US002869

PATIENT
  Age: 7 Month
  Sex: Male

DRUGS (1)
  1. TOBI [Suspect]
     Indication: CYSTIC FIBROSIS
     Dosage: 300 MG / 5 ML BID
     Route: 055

REACTIONS (4)
  - Pneumonia klebsiella [Unknown]
  - Pseudomonas test positive [Unknown]
  - Drug administered to patient of inappropriate age [Unknown]
  - Staphylococcus test positive [Unknown]
